FAERS Safety Report 6144573-X (Version None)
Quarter: 2009Q2

REPORT INFORMATION
  Report Type: 
  Country: None (occurrence: None)
  Receive Date: 20090406
  Receipt Date: 20090403
  Transmission Date: 20091009
  Serious: Yes (Death, Hospitalization)
  Sender: FDA-Public Use
  Company Number: PHHY2009CA08784

PATIENT
  Sex: Male

DRUGS (3)
  1. CLOZARIL [Suspect]
     Indication: SCHIZOPHRENIA
     Dosage: 200 MG AM AMD 450 MG QHS
     Route: 048
     Dates: start: 19920101, end: 20090310
  2. CITALOPRAM [Concomitant]
     Dosage: 600 MG DAILY
  3. DIVALPROEX SODIUM [Concomitant]
     Dosage: 750 MG, QHS

REACTIONS (3)
  - ABDOMINAL PAIN [None]
  - CONSTIPATION [None]
  - DEATH [None]
